FAERS Safety Report 9046806 (Version 2)
Quarter: 2013Q1

REPORT INFORMATION
  Report Type: Spontaneous
  Country: US (occurrence: US)
  Receive Date: 20130204
  Receipt Date: 20130301
  Transmission Date: 20140127
  Serious: No
  Sender: FDA-Public Use
  Company Number: US-BIOGENIDEC-2013BI008106

PATIENT
  Age: 33 Year
  Sex: Female

DRUGS (5)
  1. AVONEX [Suspect]
     Indication: MULTIPLE SCLEROSIS
     Route: 030
     Dates: start: 20130105
  2. ATENOLOL [Concomitant]
     Indication: ARRHYTHMIA
  3. TRILEPTAL [Concomitant]
     Indication: GRAND MAL CONVULSION
  4. NAPROSYN [Concomitant]
     Indication: PAIN
     Dates: start: 201201
  5. TYLENOL [Concomitant]
     Indication: PREMEDICATION
     Dates: start: 201301

REACTIONS (3)
  - Lymphadenopathy [Recovered/Resolved]
  - Rash [Not Recovered/Not Resolved]
  - Headache [Recovered/Resolved]
